FAERS Safety Report 5733442-2 (Version None)
Quarter: 2008Q2

REPORT INFORMATION
  Report Type: 
  Country: None (occurrence: None)
  Receive Date: 20080509
  Receipt Date: 20080428
  Transmission Date: 20081010
  Serious: Yes (Hospitalization, Other)
  Sender: FDA-Public Use
  Company Number: FR-ROCHE-562497

PATIENT
  Age: 57 Year
  Sex: Male

DRUGS (6)
  1. INTERFERON ALFA-2A [Suspect]
     Route: 065
     Dates: start: 19930101
  2. INTERFERON ALFA-2A [Suspect]
     Route: 065
     Dates: start: 19950601
  3. PREDNISONE TAB [Concomitant]
  4. NEORAL [Concomitant]
  5. AZA [Concomitant]
  6. STEROID NOS [Concomitant]

REACTIONS (4)
  - KIDNEY TRANSPLANT REJECTION [None]
  - RENAL FAILURE CHRONIC [None]
  - TRANSPLANT REJECTION [None]
  - VASCULITIS [None]
